FAERS Safety Report 5353345-5 (Version None)
Quarter: 2007Q2

REPORT INFORMATION
  Report Type: 
  Country: None (occurrence: None)
  Receive Date: 20070518
  Receipt Date: 20070313
  Transmission Date: 20071010
  Serious: No
  Sender: FDA-Public Use
  Company Number: TPA2007A00610

PATIENT
  Age: 65 Year
  Sex: Female
  Weight: 63.5036 kg

DRUGS (11)
  1. ROZEREM [Suspect]
     Indication: INSOMNIA
     Dosage: 8 MG, QHS, PER ORAL
     Route: 048
     Dates: start: 20070308
  2. NORVASC [Concomitant]
  3. ATACAND [Concomitant]
  4. FOSAMAX [Concomitant]
  5. SINGULAIR [Concomitant]
  6. VALTREX [Concomitant]
  7. ACETAMINOPHEN [Concomitant]
  8. MUCINEX [Concomitant]
  9. MULTIVITAMIN [Concomitant]
  10. CALCIUM (CALCIUM) [Concomitant]
  11. MULTIPLE B VITAMIN (VITAMIN B) [Concomitant]

REACTIONS (3)
  - DRUG INEFFECTIVE [None]
  - HANGOVER [None]
  - INITIAL INSOMNIA [None]
